FAERS Safety Report 6072908-5 (Version None)
Quarter: 2009Q1

REPORT INFORMATION
  Report Type: 
  Country: None (occurrence: None)
  Receive Date: 20090205
  Receipt Date: 20090122
  Transmission Date: 20090719
  Serious: Yes (Death, Life-Threatening, Disabling)
  Sender: FDA-Public Use
  Company Number: 002056

PATIENT
  Age: 51 Year
  Sex: Male

DRUGS (7)
  1. BUSULFEX [Suspect]
     Indication: STEM CELL TRANSPLANT
     Dosage: 200 MG, DAILY DOSE INTRAVENOUS
     Route: 042
     Dates: start: 20070606, end: 20070609
  2. TACROLIMUS [Suspect]
  3. VALPROATE SODIUM [Concomitant]
  4. CYCLOPHOSPHAMIDE [Concomitant]
  5. FILGRASTIM (FILGRASTIM) [Concomitant]
  6. METHOTREXATE [Concomitant]
  7. CYCLOSPORINE [Concomitant]

REACTIONS (8)
  - BLOOD BILIRUBIN INCREASED [None]
  - BONE MARROW TRANSPLANT [None]
  - CARDIAC ARREST [None]
  - CONVULSION [None]
  - GRAFT VERSUS HOST DISEASE [None]
  - MELAENA [None]
  - NO THERAPEUTIC RESPONSE [None]
  - TOXIC ENCEPHALOPATHY [None]
